FAERS Safety Report 4970508-9 (Version None)
Quarter: 2006Q2

REPORT INFORMATION
  Report Type: 
  Country: None (occurrence: None)
  Receive Date: 20060412
  Receipt Date: 20060403
  Transmission Date: 20061013
  Serious: Yes (Other)
  Sender: FDA-Public Use
  Company Number: PHBS2006BR05125

PATIENT
  Age: 43 Year
  Sex: Male
  Weight: 78 kg

DRUGS (11)
  1. TRILEPTAL [Suspect]
     Indication: BIPOLAR DISORDER
     Dosage: 600 MG/D
     Route: 048
  2. TRILEPTAL [Suspect]
     Dosage: 300 MG/DAY
     Route: 048
     Dates: start: 20030101
  3. ATENOLOL [Concomitant]
     Indication: ARRHYTHMIA
     Dosage: 50 MG, QD
     Route: 048
     Dates: start: 19860101
  4. DEXAMETHASONE [Concomitant]
     Indication: GLAUCOMA
     Route: 031
     Dates: start: 20030101
  5. TIMOLOL MALEATE [Concomitant]
     Indication: GLAUCOMA
     Dosage: 5 MG, QD
     Route: 031
     Dates: start: 20030101
  6. SIMVASTATIN [Concomitant]
     Indication: HYPERCHOLESTEROLAEMIA
     Dosage: 20 MG, UNK
  7. LIPITOR [Concomitant]
     Indication: HYPERCHOLESTEROLAEMIA
     Dosage: 10 MG, UNK
  8. PROPRANOLOL [Concomitant]
     Indication: ARRHYTHMIA
     Route: 048
  9. DEXAFENICOL [Concomitant]
     Indication: CORNEAL TRANSPLANT
  10. CEDUR - SLOW RELEASE [Concomitant]
     Indication: HYPERCHOLESTEROLAEMIA
  11. NEOSALDINA [Concomitant]

REACTIONS (7)
  - BLINDNESS [None]
  - BLOOD CHOLESTEROL INCREASED [None]
  - BLOOD TRIGLYCERIDES INCREASED [None]
  - DRY EYE [None]
  - HIGH DENSITY LIPOPROTEIN INCREASED [None]
  - MIGRAINE [None]
  - MYALGIA [None]
